FAERS Safety Report 5627694-7 (Version None)
Quarter: 2008Q1

REPORT INFORMATION
  Report Type: 
  Country: None (occurrence: None)
  Receive Date: 20080214
  Receipt Date: 20080214
  Transmission Date: 20080703
  Serious: No
  Sender: FDA-Public Use
  Company Number: None

PATIENT
  Sex: Male

DRUGS (1)
  1. REVILIME   15MG   CELGENE [Suspect]
     Dosage: 15MG  QD  PO
     Route: 048

REACTIONS (1)
  - THROMBOSIS [None]
